FAERS Safety Report 20211677 (Version 2)
Quarter: 2022Q4

REPORT INFORMATION
  Report Type: Spontaneous
  Country: DE (occurrence: DE)
  Receive Date: 20211221
  Receipt Date: 20221024
  Transmission Date: 20230113
  Serious: Yes (Hospitalization)
  Sender: FDA-Public Use
  Company Number: DE-NOVARTISPH-NVSC2021DE286632

PATIENT
  Age: 70 Year
  Sex: Female

DRUGS (11)
  1. METOPROLOL [Suspect]
     Active Substance: METOPROLOL
     Indication: Product used for unknown indication
     Dosage: 50 MG, 1-0-1-0
     Route: 048
  2. CANDESARTAN CILEXETIL [Suspect]
     Active Substance: CANDESARTAN CILEXETIL
     Indication: Product used for unknown indication
     Dosage: 16 MG, 1-0-1-0
     Route: 048
  3. ACLIDINIUM BROMIDE\FORMOTEROL FUMARATE [Concomitant]
     Active Substance: ACLIDINIUM BROMIDE\FORMOTEROL FUMARATE
     Indication: Product used for unknown indication
     Dosage: UNK (346/12 ?G, 1-0-1-0)
  4. LEFLUNOMIDE [Concomitant]
     Active Substance: LEFLUNOMIDE
     Indication: Product used for unknown indication
     Dosage: 15 MG 1-0-0-0
     Route: 048
  5. PANTOPRAZOLE [Concomitant]
     Active Substance: PANTOPRAZOLE
     Indication: Product used for unknown indication
     Dosage: UNK (40 MG, 1-0-1-0)
     Route: 048
  6. ROSUVASTATIN [Concomitant]
     Active Substance: ROSUVASTATIN
     Indication: Product used for unknown indication
     Dosage: UNK (20 MG, 1-0-0-0)
     Route: 048
  7. ASPIRIN [Concomitant]
     Active Substance: ASPIRIN
     Indication: Product used for unknown indication
     Dosage: UNK (100 MG, 1-0-0-0)
     Route: 048
  8. EZETIMIBE [Concomitant]
     Active Substance: EZETIMIBE
     Indication: Product used for unknown indication
     Dosage: UNK (10 MG, 0-0-1-0)
     Route: 048
  9. IPRAMOL TEVA [Concomitant]
     Indication: Product used for unknown indication
     Dosage: UNK (0.5|2.5 MG, 1-0-1-0) 0,5MG+2,5MG/2,5ML STERI-NEB
     Route: 048
  10. IBUPROFEN [Concomitant]
     Active Substance: IBUPROFEN
     Indication: Product used for unknown indication
     Dosage: UNK IF NECESSARY
     Route: 048
  11. XIGDUO XR [Concomitant]
     Active Substance: DAPAGLIFLOZIN PROPANEDIOL\METFORMIN HYDROCHLORIDE
     Indication: Product used for unknown indication
     Dosage: UNK (5/1000 MG, 1-0-1-0)
     Route: 048

REACTIONS (3)
  - Hypotension [Unknown]
  - Tachycardia [Unknown]
  - Dizziness [Unknown]
